FAERS Safety Report 12007921 (Version 3)
Quarter: 2017Q4

REPORT INFORMATION
  Report Type: Spontaneous
  Country: US (occurrence: US)
  Receive Date: 20160205
  Receipt Date: 20171006
  Transmission Date: 20180320
  Serious: No
  Sender: FDA-Public Use
  Company Number: US-ASTRAZENECA-2016SE11931

PATIENT
  Age: 20344 Day
  Sex: Male
  Weight: 81.6 kg

DRUGS (5)
  1. QUINAPRIL. [Concomitant]
     Active Substance: QUINAPRIL
     Dates: start: 20160108
  2. BRILINTA [Suspect]
     Active Substance: TICAGRELOR
     Indication: ACUTE CORONARY SYNDROME
     Route: 048
     Dates: start: 20160108
  3. BRILINTA [Suspect]
     Active Substance: TICAGRELOR
     Indication: ACUTE CORONARY SYNDROME
     Route: 048
  4. LIPITOR [Concomitant]
     Active Substance: ATORVASTATIN CALCIUM
     Dates: start: 20160108
  5. METOPROLOL. [Suspect]
     Active Substance: METOPROLOL
     Route: 048
     Dates: start: 20160108

REACTIONS (5)
  - Intentional product use issue [Unknown]
  - Haematoma [Unknown]
  - Chest discomfort [Unknown]
  - Off label use [Unknown]
  - Contusion [Recovered/Resolved]

NARRATIVE: CASE EVENT DATE: 20170823
